FAERS Safety Report 8314791-0 (Version None)
Quarter: 2012Q2

REPORT INFORMATION
  Report Type: 
  Country: None (occurrence: None)
  Receive Date: 20120426
  Receipt Date: 20120423
  Transmission Date: 20120825
  Serious: Yes (Hospitalization)
  Sender: FDA-Public Use
  Company Number: PHEH2012US008081

PATIENT
  Sex: Male

DRUGS (6)
  1. JANUMET [Concomitant]
  2. AGGRENOX [Concomitant]
  3. EXFORGE [Suspect]
     Dosage: 1 DF (160/5 MG), QW2
  4. BYSTOLIC [Concomitant]
  5. ACETYLSALICYLIC ACID SRT [Concomitant]
  6. EXFORGE [Suspect]
     Dosage: 1 DF (160/5 MG), BID

REACTIONS (1)
  - CEREBROVASCULAR ACCIDENT [None]
